FAERS Safety Report 4413052-X (Version None)
Quarter: 2004Q3

REPORT INFORMATION
  Report Type: 
  Country: None (occurrence: None)
  Receive Date: 20040802
  Receipt Date: 20040802
  Transmission Date: 20050211
  Serious: Yes (Other)
  Sender: FDA-Public Use
  Company Number: None

PATIENT
  Sex: Female
  Weight: 124.0588 kg

DRUGS (5)
  1. DETROL LA [Suspect]
     Indication: URINARY INCONTINENCE
     Dosage: ONCE DAILY ORAL
     Route: 048
     Dates: start: 20040501, end: 20040715
  2. DETROL LA [Suspect]
     Indication: URINARY RETENTION
     Dosage: ONCE DAILY ORAL
     Route: 048
     Dates: start: 20040501, end: 20040715
  3. LIPITOR [Concomitant]
  4. PREVACID [Concomitant]
  5. HYZAAR [Concomitant]

REACTIONS (1)
  - APHTHOUS STOMATITIS [None]
